FAERS Safety Report 10432416 (Version 1)
Quarter: 2014Q3

REPORT INFORMATION
  Report Type: Spontaneous
  Country: CA (occurrence: CA)
  Receive Date: 20140905
  Receipt Date: 20140905
  Transmission Date: 20150326
  Serious: Yes (Other)
  Sender: FDA-Public Use
  Company Number: CA-BAYER-2014-131534

PATIENT
  Sex: Female

DRUGS (1)
  1. YAZ [Suspect]
     Active Substance: DROSPIRENONE\ETHINYL ESTRADIOL
     Dosage: UNK
     Route: 048
     Dates: start: 201302, end: 201306

REACTIONS (4)
  - Intracranial aneurysm [None]
  - Sinus disorder [None]
  - Alopecia [None]
  - Head discomfort [None]

NARRATIVE: CASE EVENT DATE: 2013
